FAERS Safety Report 7876384-9 (Version None)
Quarter: 2011Q4

REPORT INFORMATION
  Report Type: 
  Country: None (occurrence: None)
  Receive Date: 20111031
  Receipt Date: 20111025
  Transmission Date: 20120403
  Serious: Yes (Hospitalization, Other)
  Sender: FDA-Public Use
  Company Number: US-ABBOTT-11P-163-0850543-00

PATIENT
  Sex: Female
  Weight: 75.364 kg

DRUGS (7)
  1. METHOTREXATE [Suspect]
     Indication: PRODUCT USED FOR UNKNOWN INDICATION
  2. HUMIRA [Suspect]
     Indication: PSORIATIC ARTHROPATHY
     Dates: start: 20061129, end: 20080501
  3. FLORASTOR [Concomitant]
     Indication: DISBACTERIOSIS
     Dates: start: 20110812
  4. VITAMIN A [Concomitant]
     Indication: PRODUCT USED FOR UNKNOWN INDICATION
  5. CLARINEX [Concomitant]
     Indication: HYPERSENSITIVITY
     Dates: start: 20090101
  6. HUMIRA [Suspect]
     Dates: start: 20081101, end: 20110201
  7. UNKNOWN MEDICATION [Concomitant]
     Indication: HYPERSENSITIVITY
     Dates: end: 20090101

REACTIONS (12)
  - WOUND SECRETION [None]
  - DEVICE DISLOCATION [None]
  - IMPAIRED HEALING [None]
  - WOUND DEHISCENCE [None]
  - DYSPEPSIA [None]
  - MOBILITY DECREASED [None]
  - SPINAL OPERATION [None]
  - PYREXIA [None]
  - DEVICE RELATED INFECTION [None]
  - ARTHRITIS [None]
  - SPINAL ROD REMOVAL [None]
  - PSORIATIC ARTHROPATHY [None]
